FAERS Safety Report 25133756 (Version 1)
Quarter: 2025Q1

REPORT INFORMATION
  Report Type: Report from Study
  Country: CA (occurrence: CA)
  Receive Date: 20250328
  Receipt Date: 20250328
  Transmission Date: 20250408
  Serious: Yes (Other)
  Sender: JOHNSON AND JOHNSON
  Company Number: CA-JNJFOC-20240834810

PATIENT
  Age: 57 Year
  Sex: Female

DRUGS (10)
  1. MACITENTAN [Suspect]
     Active Substance: MACITENTAN
     Indication: Pulmonary hypertension
     Route: 048
     Dates: start: 20240731
  2. SELEXIPAG [Suspect]
     Active Substance: SELEXIPAG
     Indication: Pulmonary hypertension
     Route: 048
     Dates: start: 20241014
  3. SELEXIPAG [Suspect]
     Active Substance: SELEXIPAG
     Route: 048
  4. SELEXIPAG [Suspect]
     Active Substance: SELEXIPAG
     Dosage: 200MCG AM/400MCG PM
     Route: 048
  5. SELEXIPAG [Suspect]
     Active Substance: SELEXIPAG
     Dosage: 400MCG AM/600MCG PM
     Route: 048
     Dates: start: 20241227
  6. SELEXIPAG [Suspect]
     Active Substance: SELEXIPAG
     Dosage: 800MCG AM/1000MCG PM
     Route: 048
  7. SELEXIPAG [Suspect]
     Active Substance: SELEXIPAG
     Route: 048
     Dates: start: 20250221
  8. SELEXIPAG [Suspect]
     Active Substance: SELEXIPAG
     Route: 048
     Dates: start: 20250314
  9. ADCIRCA [Suspect]
     Active Substance: TADALAFIL
     Indication: Product used for unknown indication
     Route: 065
     Dates: start: 20240807
  10. SYNTHROID [Concomitant]
     Active Substance: LEVOTHYROXINE SODIUM

REACTIONS (20)
  - Pain [Recovering/Resolving]
  - Hypotension [Not Recovered/Not Resolved]
  - Pain in jaw [Not Recovered/Not Resolved]
  - Diarrhoea [Recovering/Resolving]
  - Headache [Recovering/Resolving]
  - Fatigue [Recovering/Resolving]
  - Nausea [Unknown]
  - Pain in extremity [Not Recovered/Not Resolved]
  - Malaise [Unknown]
  - Nasopharyngitis [Recovered/Resolved]
  - Oropharyngeal pain [Recovered/Resolved]
  - Facial pain [Recovering/Resolving]
  - Chills [Not Recovered/Not Resolved]
  - Asthenia [Not Recovered/Not Resolved]
  - Decreased appetite [Unknown]
  - Weight decreased [Unknown]
  - Adverse event [Unknown]
  - Insomnia [Unknown]
  - Dizziness [Not Recovered/Not Resolved]
  - Off label use [Unknown]

NARRATIVE: CASE EVENT DATE: 20240801
